FAERS Safety Report 25781998 (Version 1)
Quarter: 2025Q3

REPORT INFORMATION
  Report Type: Report from Study
  Country: US (occurrence: US)
  Receive Date: 20250909
  Receipt Date: 20250909
  Transmission Date: 20251021
  Serious: Yes (Other)
  Sender: ABBVIE
  Company Number: US-ABBVIE-6449123

PATIENT
  Age: 36 Year
  Sex: Female

DRUGS (1)
  1. SKYRIZI [Suspect]
     Active Substance: RISANKIZUMAB-RZAA
     Indication: Crohn^s disease
     Route: 058
     Dates: start: 20240724

REACTIONS (4)
  - Stoma creation [Unknown]
  - Device issue [Not Recovered/Not Resolved]
  - Illness [Unknown]
  - Stoma care [Unknown]

NARRATIVE: CASE EVENT DATE: 20250903
